FAERS Safety Report 12295944 (Version 1)
Quarter: 2016Q2

REPORT INFORMATION
  Report Type: Spontaneous
  Country: TN (occurrence: TN)
  Receive Date: 20160422
  Receipt Date: 20160422
  Transmission Date: 20160815
  Serious: Yes (Other)
  Sender: FDA-Public Use
  Company Number: TN-WATSON-2016-08250

PATIENT
  Age: 68 Year
  Sex: Male

DRUGS (2)
  1. GENTAMICIN (UNKNOWN) [Suspect]
     Active Substance: GENTAMICIN
     Indication: ENDOCARDITIS BACTERIAL
     Dosage: UNK
     Route: 065
  2. VANCOMYCIN (UNKNOWN) [Suspect]
     Active Substance: VANCOMYCIN
     Indication: ENDOCARDITIS BACTERIAL
     Dosage: UNK
     Route: 065

REACTIONS (1)
  - Drug ineffective [Recovered/Resolved]
